FAERS Safety Report 9082667 (Version 4)
Quarter: 2013Q3

REPORT INFORMATION
  Report Type: Spontaneous
  Country: US (occurrence: US)
  Receive Date: 20130218
  Receipt Date: 20130812
  Transmission Date: 20140515
  Serious: Yes (Other)
  Sender: FDA-Public Use
  Company Number: US-PFIZER INC-2013060125

PATIENT
  Age: 63 Year
  Sex: Female
  Weight: 98.1 kg

DRUGS (14)
  1. XELJANZ [Suspect]
     Indication: RHEUMATOID ARTHRITIS
     Dosage: 5 MG, 2X/DAY
     Route: 048
     Dates: start: 20120512
  2. XELJANZ [Suspect]
     Dosage: 5 MG, 2X/DAY
     Dates: start: 20121129
  3. XELJANZ [Suspect]
     Dosage: 5 MG, 2X/DAY
     Dates: start: 20121205
  4. LEFLUNOMIDE [Suspect]
     Indication: RHEUMATOID ARTHRITIS
     Dosage: 20 MG, 1X/DAY (QD)
     Route: 048
     Dates: start: 20120727
  5. ACIPHEX [Concomitant]
     Dosage: 20 MG, 1X/DAY
     Route: 048
     Dates: start: 20110401
  6. ATENOLOL [Concomitant]
     Dosage: 50 MG, 1X/DAY
     Route: 048
     Dates: start: 20110401
  7. AZITHROMYCIN [Concomitant]
     Indication: PNEUMONIA
     Dosage: 250 MG, 2X/DAY
     Route: 048
     Dates: start: 20130206, end: 20130210
  8. CEFTRIAXONE [Concomitant]
     Indication: PNEUMONIA
     Dosage: 2 G, UNK
     Route: 042
     Dates: start: 20130224
  9. CELEBREX [Concomitant]
     Indication: RHEUMATOID ARTHRITIS
     Dosage: 200 MG, 2X/DAY
     Route: 048
     Dates: start: 20130206
  10. CELEBREX [Concomitant]
     Dosage: 200 MG, 1X/DAY (QD)
     Route: 048
  11. CYANOCOBALAMIN [Concomitant]
     Dosage: 0.1 ML, MONTHLY (QMO)
     Route: 030
     Dates: start: 20130114
  12. HYDROCHLOROTHIAZIDE [Concomitant]
     Dosage: 12.5 MG, 1X/DAY
     Route: 048
     Dates: start: 20120727
  13. LYRICA [Concomitant]
     Indication: RHEUMATIC DISORDER
     Dosage: 150 MG, 2X/DAY
     Route: 048
     Dates: start: 20120913
  14. LYRICA [Concomitant]
     Indication: FIBROMYALGIA

REACTIONS (28)
  - Pneumonia [Unknown]
  - Monoclonal gammopathy [Unknown]
  - Sleep apnoea syndrome [Unknown]
  - Intervertebral disc degeneration [Unknown]
  - Headache [Unknown]
  - Musculoskeletal pain [Unknown]
  - Upper respiratory tract infection [Unknown]
  - Pyrexia [Unknown]
  - Sinus congestion [Unknown]
  - Fatigue [Unknown]
  - Productive cough [Unknown]
  - Dyspnoea [Unknown]
  - Tooth disorder [Unknown]
  - Arthralgia [Unknown]
  - Sinus headache [Unknown]
  - Arthropathy [Unknown]
  - Hepatic enzyme increased [Unknown]
  - Vitamin D deficiency [Unknown]
  - Vitamin B complex deficiency [Unknown]
  - Osteoarthritis [Unknown]
  - Fibromyalgia [Unknown]
  - Oedema [Unknown]
  - Myositis [Unknown]
  - Nasopharyngitis [Unknown]
  - Malaise [Unknown]
  - Myalgia [Unknown]
  - Post procedural complication [Unknown]
  - Pain in extremity [Unknown]
